FAERS Safety Report 9515104 (Version 1)
Quarter: 2013Q1

REPORT INFORMATION
  Report Type: Spontaneous
  Country: US (occurrence: None)
  Receive Date: 20130305
  Receipt Date: 20130305
  Transmission Date: 20140127
  Serious: Yes (Hospitalization)
  Sender: FDA-Public Use
  Company Number: 163-21880-12121963

PATIENT
  Age: 52 Year
  Sex: Male
  Weight: 72.58 kg

DRUGS (11)
  1. REVLIMID (LENALIDOMIDE) (25 MILLIGRAM, CAPSULES) [Suspect]
     Indication: PLASMA CELL MYELOMA
     Dosage: 25 MG, 1 IN 1 D, PO
     Route: 048
     Dates: start: 201209, end: 2012
  2. FENTANYL (FENTANYL) (POULTICE OR PATCH) [Suspect]
     Indication: PAIN
     Dosage: TD
  3. ACYCLOVIR (ACICLOVIR) (CAPSULES) [Concomitant]
  4. COLACE (DOCUSATE SODIUM) (CAPSULES) [Concomitant]
  5. GABAPENTIN (GABAPENTIN) (UNKNOWN) (GABAPENTIN) [Concomitant]
  6. SENNA (SENNA) (CAPSULES) [Concomitant]
  7. HUMULIN N (INSULIN HUMAN INJECTION, ISOPHANE) (CAPSULES) [Concomitant]
  8. DEXAMETHASONE (DEXAMETHASONE) (CAPSULES) [Concomitant]
  9. PANTOPRAZOLE  SODIUM ( PANTOPRAZOLE SODIUM) (UNKNOWN) [Concomitant]
  10. METFORMIN HCL (METFORMIN HYDROCHLORIDE) (UNKNOWN) [Concomitant]
  11. NOVOLIN N (INSULIN HUMAN INJECTION, ISOPHANE) (UNKNOWN) [Concomitant]

REACTIONS (4)
  - Fatigue [None]
  - Pain [None]
  - Abasia [None]
  - Rash [None]
